FAERS Safety Report 9405425 (Version 1)
Quarter: 2013Q3

REPORT INFORMATION
  Report Type: Spontaneous
  Country: GB (occurrence: GB)
  Receive Date: 20130717
  Receipt Date: 20130717
  Transmission Date: 20140515
  Serious: Yes (Other)
  Sender: FDA-Public Use
  Company Number: GB-WATSON-2013-12495

PATIENT
  Age: 64 Year
  Sex: Female

DRUGS (3)
  1. FUROSEMIDE (UNKNOWN) [Suspect]
     Indication: FLUID RETENTION
     Dosage: 40 MG, UNKNOWN
     Route: 048
     Dates: start: 20130604, end: 20130611
  2. WARFARIN [Concomitant]
     Indication: PRODUCT USED FOR UNKNOWN INDICATION
     Route: 065
  3. INDAPAMIDE [Concomitant]
     Indication: PRODUCT USED FOR UNKNOWN INDICATION
     Route: 065

REACTIONS (1)
  - Diverticulitis [Recovered/Resolved]
